FAERS Safety Report 16148344 (Version 1)
Quarter: 2019Q2

REPORT INFORMATION
  Report Type: Spontaneous
  Country: US (occurrence: US)
  Receive Date: 20190402
  Receipt Date: 20190402
  Transmission Date: 20190711
  Serious: Yes (Other)
  Sender: FDA-Public Use
  Company Number: US-TEVA-2019-US-1029479

PATIENT
  Sex: Female

DRUGS (2)
  1. TEVA GENERIC BUTALBITAL, ASPIRIN, AND CAFFEINE CAPSULES [Suspect]
     Active Substance: ASPIRIN\BUTALBITAL\CAFFEINE
     Indication: HEADACHE
  2. TEVA GENERIC BUTALBITAL, ASPIRIN, AND CAFFEINE CAPSULES [Suspect]
     Active Substance: ASPIRIN\BUTALBITAL\CAFFEINE
     Indication: MYALGIA

REACTIONS (3)
  - Drug hypersensitivity [Unknown]
  - Blood pressure increased [Unknown]
  - Drug ineffective [Unknown]
